FAERS Safety Report 6117328-X (Version None)
Quarter: 2009Q1

REPORT INFORMATION
  Report Type: 
  Country: None (occurrence: None)
  Receive Date: 20090314
  Receipt Date: 20090114
  Transmission Date: 20090719
  Serious: No
  Sender: FDA-Public Use
  Company Number: US-ABBOTT-09P-163-0497832-00

PATIENT
  Sex: Female
  Weight: 70.824 kg

DRUGS (12)
  1. HUMIRA [Suspect]
     Indication: RHEUMATOID ARTHRITIS
     Dosage: CHANGED TO PEN
     Dates: start: 20070101, end: 20080101
  2. HUMIRA [Suspect]
  3. HUMIRA [Suspect]
     Indication: RHEUMATOID ARTHRITIS
     Dates: start: 20080101
  4. PROVIGIL [Concomitant]
     Indication: ASTHENIA
  5. FOLIC ACID [Concomitant]
     Indication: DRUG USE FOR UNKNOWN INDICATION
  6. DIOVAN [Concomitant]
     Indication: DRUG USE FOR UNKNOWN INDICATION
  7. LEFLUNOMIDE [Concomitant]
     Indication: DRUG USE FOR UNKNOWN INDICATION
  8. TOPAMAX [Concomitant]
     Indication: DRUG USE FOR UNKNOWN INDICATION
     Dosage: 1
  9. LYRICA [Concomitant]
     Indication: DRUG USE FOR UNKNOWN INDICATION
  10. AMRIX [Concomitant]
     Indication: PAIN
     Dosage: PRN
  11. WELLBUTRIN [Concomitant]
     Indication: DRUG USE FOR UNKNOWN INDICATION
     Dosage: 1
  12. IMITREX [Concomitant]
     Indication: DRUG USE FOR UNKNOWN INDICATION
     Dosage: PRN

REACTIONS (1)
  - HEADACHE [None]
